FAERS Safety Report 6262096-4 (Version None)
Quarter: 2009Q3

REPORT INFORMATION
  Report Type: 
  Country: None (occurrence: None)
  Receive Date: 20090709
  Receipt Date: 20090702
  Transmission Date: 20100115
  Serious: Yes (Death)
  Sender: FDA-Public Use
  Company Number: US-WYE-H07159408

PATIENT
  Sex: Female

DRUGS (3)
  1. PREMPRO [Suspect]
  2. ESTROPIPATE [Suspect]
  3. OGEN [Suspect]

REACTIONS (1)
  - BREAST CANCER [None]
